FAERS Safety Report 5263084-7 (Version None)
Quarter: 2007Q1

REPORT INFORMATION
  Report Type: 
  Country: None (occurrence: None)
  Receive Date: 20070312
  Receipt Date: 20070302
  Transmission Date: 20070707
  Serious: Yes (Other)
  Sender: FDA-Public Use
  Company Number: JP-PFIZER INC-2007005165

PATIENT
  Age: 31 Year
  Sex: Male

DRUGS (5)
  1. HALCION [Suspect]
     Route: 048
     Dates: start: 20061201, end: 20070115
  2. PAXIL [Suspect]
     Route: 048
  3. ROHYPNOL [Suspect]
  4. RESLIN [Concomitant]
     Route: 048
  5. URSO [Concomitant]
     Route: 048

REACTIONS (2)
  - ALANINE AMINOTRANSFERASE INCREASED [None]
  - ASPARTATE AMINOTRANSFERASE INCREASED [None]
